FAERS Safety Report 9579973 (Version 1)
Quarter: 2013Q4

REPORT INFORMATION
  Report Type: Spontaneous
  Country: US (occurrence: US)
  Receive Date: 20131002
  Receipt Date: 20131002
  Transmission Date: 20140711
  Serious: Yes (Hospitalization)
  Sender: FDA-Public Use
  Company Number: US-JNJFOC-20130911862

PATIENT
  Age: 66 Year
  Sex: Male
  Weight: 81.65 kg

DRUGS (7)
  1. ROGAINE UNSPECIFIED INGREDIENT [Suspect]
     Route: 061
  2. ROGAINE UNSPECIFIED INGREDIENT [Suspect]
     Indication: HAIR GROWTH ABNORMAL
     Route: 061
     Dates: start: 2004, end: 20130501
  3. TIKOSYN [Concomitant]
     Indication: CARDIAC DISORDER
     Route: 065
     Dates: start: 20130501
  4. APIXABAN [Concomitant]
     Indication: CARDIAC DISORDER
     Route: 065
     Dates: start: 20130501
  5. METOPROLOL [Concomitant]
     Indication: CARDIAC DISORDER
     Route: 065
     Dates: start: 20130501
  6. ATORVASTATIN [Concomitant]
     Indication: CARDIAC DISORDER
     Route: 065
     Dates: start: 20130501
  7. OMEPRAZOLE [Concomitant]
     Indication: CARDIAC DISORDER
     Route: 065
     Dates: start: 20130501

REACTIONS (1)
  - Atrial fibrillation [Recovered/Resolved]
